FAERS Safety Report 4639339-3 (Version None)
Quarter: 2005Q2

REPORT INFORMATION
  Report Type: 
  Country: None (occurrence: None)
  Receive Date: 20050419
  Receipt Date: 20050412
  Transmission Date: 20051028
  Serious: Yes (Hospitalization, Other)
  Sender: FDA-Public Use
  Company Number: US-ABBOTT-05P-163-0297139-00

PATIENT
  Sex: Female

DRUGS (6)
  1. BIAXIN [Suspect]
     Indication: UPPER RESPIRATORY TRACT INFECTION
     Route: 048
     Dates: start: 20050405, end: 20050406
  2. FLAGYL [Concomitant]
     Indication: CLOSTRIDIAL INFECTION
     Dates: start: 20050323, end: 20050406
  3. HYDROGENE [Concomitant]
     Indication: MULTIPLE SCLEROSIS
  4. SERTRALINE HYDROCHLORIDE [Concomitant]
     Indication: MULTIPLE SCLEROSIS
  5. CLORAZEPAN [Concomitant]
     Indication: MULTIPLE SCLEROSIS
  6. VITAMINS [Concomitant]
     Indication: MEDICAL DIET

REACTIONS (4)
  - CONFUSIONAL STATE [None]
  - DYSKINESIA [None]
  - ENCEPHALOPATHY [None]
  - HALLUCINATION [None]
